FAERS Safety Report 4562579-9 (Version None)
Quarter: 2005Q1

REPORT INFORMATION
  Report Type: 
  Country: None (occurrence: None)
  Receive Date: 20050127
  Receipt Date: 20041104
  Transmission Date: 20050727
  Serious: Yes (Hospitalization)
  Sender: FDA-Public Use
  Company Number: ES-ROCHE-385240

PATIENT
  Age: 54 Year
  Sex: Male
  Weight: 66.2 kg

DRUGS (9)
  1. DACLIZUMAB [Suspect]
     Route: 042
     Dates: start: 20041018, end: 20041018
  2. DACLIZUMAB [Suspect]
     Route: 042
     Dates: end: 20041218
  3. MYCOPHENOLATE MOFETIL [Suspect]
     Route: 048
     Dates: start: 20041018
  4. TACROLIMUS [Suspect]
     Route: 048
     Dates: start: 20041018
  5. STEROIDS NOS [Suspect]
     Route: 048
     Dates: start: 20041018
  6. OMEPRAZOLE [Concomitant]
     Route: 048
     Dates: start: 20041019
  7. COTRIM [Concomitant]
     Dosage: DOSE REPORTED AS 80/400 DAILY.
     Route: 048
     Dates: start: 20041019
  8. ATENOLOL [Concomitant]
     Route: 048
     Dates: start: 20041024
  9. COTRIM [Concomitant]
     Dosage: DOSE REPORTED AS 40/400 DAILY.
     Route: 048
     Dates: start: 20041018

REACTIONS (8)
  - CEREBRAL DISORDER [None]
  - CYTOMEGALOVIRUS INFECTION [None]
  - ESCHERICHIA URINARY TRACT INFECTION [None]
  - FISTULA [None]
  - ISCHAEMIC STROKE [None]
  - PYREXIA [None]
  - URETERIC FISTULA [None]
  - URINARY TRACT INFECTION [None]
